FAERS Safety Report 19304423 (Version 4)
Quarter: 2022Q2

REPORT INFORMATION
  Report Type: Report from Study
  Country: US (occurrence: US)
  Receive Date: 20210525
  Receipt Date: 20220428
  Transmission Date: 20220721
  Serious: Yes (Life-Threatening, Other)
  Sender: FDA-Public Use
  Company Number: US-BRISTOL-MYERS SQUIBB COMPANY-BMS-2021-050129

PATIENT
  Age: 45 Year
  Sex: Female
  Weight: 70 kg

DRUGS (34)
  1. NIVOLUMAB [Suspect]
     Active Substance: NIVOLUMAB
     Indication: Colorectal cancer
     Route: 042
     Dates: start: 20210422, end: 20210422
  2. NIVOLUMAB [Suspect]
     Active Substance: NIVOLUMAB
     Route: 042
     Dates: start: 20210520, end: 20210520
  3. NIVOLUMAB [Suspect]
     Active Substance: NIVOLUMAB
     Dosage: 80 MILLIGRAM
     Route: 042
     Dates: start: 20210520, end: 20210520
  4. MORPHINE SULFATE [Concomitant]
     Active Substance: MORPHINE SULFATE
     Indication: Adverse event
     Route: 042
     Dates: start: 20210520, end: 20210520
  5. LOPERAMIDE HYDROCHLORIDE [Concomitant]
     Active Substance: LOPERAMIDE HYDROCHLORIDE
     Indication: Product used for unknown indication
     Route: 048
     Dates: start: 2021
  6. LOPERAMIDE HYDROCHLORIDE [Concomitant]
     Active Substance: LOPERAMIDE HYDROCHLORIDE
     Dosage: 4 MILLIGRAM
     Route: 048
     Dates: start: 2021
  7. ONDANSETRON [Concomitant]
     Active Substance: ONDANSETRON
     Indication: Product used for unknown indication
     Route: 048
     Dates: start: 2021
  8. ONDANSETRON [Concomitant]
     Active Substance: ONDANSETRON
     Route: 048
     Dates: start: 2021
  9. VITAMIN D3 [Concomitant]
     Active Substance: CHOLECALCIFEROL
     Indication: Product used for unknown indication
     Dosage: 1 NO UNIT
     Route: 048
     Dates: start: 2021
  10. VITAMIN D3 [Concomitant]
     Active Substance: CHOLECALCIFEROL
     Dosage: 1 ABSENT 1 ABSENT
     Route: 048
     Dates: start: 2021
  11. FAMOTIDINE [Concomitant]
     Active Substance: FAMOTIDINE
     Indication: Adverse event
     Route: 042
     Dates: start: 20210520, end: 20210520
  12. METHYLPREDNISOLONE SODIUM SUCCINATE [Concomitant]
     Active Substance: METHYLPREDNISOLONE SODIUM SUCCINATE
     Indication: Adverse event
     Route: 042
     Dates: start: 20210520, end: 20210520
  13. METHYLPREDNISOLONE SODIUM SUCCINATE [Concomitant]
     Active Substance: METHYLPREDNISOLONE SODIUM SUCCINATE
     Route: 042
     Dates: start: 20210520, end: 20210520
  14. ALBUTEROL SULFATE [Concomitant]
     Active Substance: ALBUTEROL SULFATE
     Indication: Product used for unknown indication
     Dosage: 2 NO UNIT
     Route: 055
     Dates: start: 2017
  15. MEPERIDINE HYDROCHLORIDE [Concomitant]
     Active Substance: MEPERIDINE HYDROCHLORIDE
     Indication: Adverse event
     Dosage: 12.5 MILLIGRAM
     Route: 042
     Dates: start: 20210520, end: 20210520
  16. MEPERIDINE HYDROCHLORIDE [Concomitant]
     Active Substance: MEPERIDINE HYDROCHLORIDE
     Indication: Product used for unknown indication
     Route: 042
     Dates: start: 20210520, end: 20210520
  17. SODIUM CHLORIDE [Concomitant]
     Active Substance: SODIUM CHLORIDE
     Indication: Adverse event
     Dosage: 1000 ABSENT 1000 ABSENT
     Route: 042
     Dates: start: 20210520, end: 20210520
  18. SODIUM CHLORIDE [Concomitant]
     Active Substance: SODIUM CHLORIDE
     Indication: Product used for unknown indication
  19. DIPHENHYDRAMINE HYDROCHLORIDE [Concomitant]
     Active Substance: DIPHENHYDRAMINE HYDROCHLORIDE
     Indication: Adverse event
     Route: 042
     Dates: start: 20210520, end: 20210520
  20. ATIVAN [Concomitant]
     Active Substance: LORAZEPAM
     Indication: Product used for unknown indication
     Route: 048
     Dates: start: 2021
  21. ATIVAN [Concomitant]
     Active Substance: LORAZEPAM
     Route: 048
     Dates: start: 2021
  22. VITAMIN B6 [Concomitant]
     Active Substance: PYRIDOXINE HYDROCHLORIDE
     Indication: Product used for unknown indication
     Route: 048
     Dates: start: 2021
  23. CYANOCOBALAMIN [Concomitant]
     Active Substance: CYANOCOBALAMIN
     Indication: Product used for unknown indication
     Route: 048
     Dates: start: 2021
  24. CYANOCOBALAMIN [Concomitant]
     Active Substance: CYANOCOBALAMIN
     Route: 048
     Dates: start: 2021
  25. GABAPENTIN [Concomitant]
     Active Substance: GABAPENTIN
     Indication: Product used for unknown indication
     Route: 048
     Dates: start: 2017
  26. GABAPENTIN [Concomitant]
     Active Substance: GABAPENTIN
     Dosage: 3000 MILLIGRAM
     Route: 048
     Dates: start: 2017
  27. ACETAMINOPHEN [Concomitant]
     Active Substance: ACETAMINOPHEN
     Indication: Product used for unknown indication
     Route: 048
     Dates: start: 2021
  28. POTASSIUM CHLORIDE [Concomitant]
     Active Substance: POTASSIUM CHLORIDE
     Indication: Product used for unknown indication
     Dosage: 1 ABSENT 1 ABSENT
     Route: 048
     Dates: start: 2021
  29. PSEUDOEPHEDRINE HYDROCHLORIDE [Concomitant]
     Active Substance: PSEUDOEPHEDRINE HYDROCHLORIDE
     Indication: Product used for unknown indication
     Dosage: 1 ABSENT 1 ABSENT
     Route: 048
     Dates: start: 2021
  30. ROBITUSSIN 12 HOUR COUGH RELIEF [Concomitant]
     Active Substance: DEXTROMETHORPHAN HYDROBROMIDE
     Indication: Product used for unknown indication
     Dosage: 1 ABSENT 1 ABSENT
     Route: 048
     Dates: start: 2021
  31. TESSALON [Concomitant]
     Active Substance: BENZONATATE
     Indication: Product used for unknown indication
     Dosage: 1 ABSENT 1 ABSENT
     Route: 048
     Dates: start: 2020
  32. CLARITHROMYCIN [Concomitant]
     Active Substance: CLARITHROMYCIN
     Indication: Product used for unknown indication
     Route: 048
     Dates: start: 2021
  33. NAPROXEN SODIUM [Concomitant]
     Active Substance: NAPROXEN SODIUM
     Indication: Product used for unknown indication
     Dosage: 440 MILLIGRAM
     Route: 048
     Dates: start: 2021
  34. HYDROCODONE BITARTRATE AND GUAIFENESIN [Concomitant]
     Active Substance: GUAIFENESIN\HYDROCODONE BITARTRATE
     Indication: Product used for unknown indication
     Dosage: 5 ABSENT 5 ABSENT
     Route: 048
     Dates: start: 2021

REACTIONS (1)
  - Infusion related reaction [Recovered/Resolved]

NARRATIVE: CASE EVENT DATE: 20210520
